FAERS Safety Report 12417072 (Version 1)
Quarter: 2016Q2

REPORT INFORMATION
  Report Type: Report from Study
  Country: GB (occurrence: GB)
  Receive Date: 20160530
  Receipt Date: 20160530
  Transmission Date: 20160815
  Serious: Yes (Other)
  Sender: FDA-Public Use
  Company Number: GB-JNJFOC-20131214596

PATIENT
  Sex: Female

DRUGS (1)
  1. SIMPONI [Suspect]
     Active Substance: GOLIMUMAB
     Indication: PRODUCT USED FOR UNKNOWN INDICATION
     Route: 058

REACTIONS (8)
  - Haematochezia [Unknown]
  - Gingivitis [Unknown]
  - Pain [Unknown]
  - Muscle spasms [Unknown]
  - Furuncle [Unknown]
  - Abdominal pain upper [Unknown]
  - Psoriasis [Unknown]
  - Pharyngitis [Unknown]
